FAERS Safety Report 5191536-7 (Version None)
Quarter: 2006Q4

REPORT INFORMATION
  Report Type: 
  Country: None (occurrence: None)
  Receive Date: 20061219
  Receipt Date: 20061219
  Transmission Date: 20070319
  Serious: Yes (Other)
  Sender: FDA-Public Use
  Company Number: None

PATIENT
  Age: 50 Year
  Sex: Female
  Weight: 92.9874 kg

DRUGS (2)
  1. LISINOPRIL [Suspect]
     Indication: HYPERTENSION
     Dosage: 20 MG 1 AT NIGHT PO
     Route: 048
     Dates: start: 20061116, end: 20061123
  2. LISINOPRIL [Suspect]
     Indication: HYPERTENSION
     Dosage: 20 MG 1 AT NIGHT PO
     Route: 048
     Dates: start: 20061201, end: 20061217

REACTIONS (12)
  - AMNESIA [None]
  - ASTHENOPIA [None]
  - COUGH [None]
  - DIZZINESS [None]
  - DRY EYE [None]
  - EYE PAIN [None]
  - FATIGUE [None]
  - HEADACHE [None]
  - HYPOTENSION [None]
  - IMPAIRED DRIVING ABILITY [None]
  - JUDGEMENT IMPAIRED [None]
  - SPEECH DISORDER [None]
